FAERS Safety Report 22684389 (Version 3)
Quarter: 2023Q4

REPORT INFORMATION
  Report Type: Spontaneous
  Country: DE (occurrence: DE)
  Receive Date: 20230709
  Receipt Date: 20231121
  Transmission Date: 20240110
  Serious: Yes (Other)
  Sender: FDA-Public Use
  Company Number: DE-JNJFOC-20230715396

PATIENT
  Age: 20 Year
  Sex: Female

DRUGS (10)
  1. SPRAVATO [Suspect]
     Active Substance: ESKETAMINE
     Indication: Depression
  2. SPRAVATO [Suspect]
     Active Substance: ESKETAMINE
     Dosage: 2X28 MG (REPORTED DOSE)
  3. SPRAVATO [Suspect]
     Active Substance: ESKETAMINE
  4. ETHINYL ESTRADIOL\LEVONORGESTREL [Concomitant]
     Active Substance: ETHINYL ESTRADIOL\LEVONORGESTREL
     Dosage: 30 UG/150 UG; STRENGTH 0.15 MG AND 0.03 MG; 1-0-0-0 PIECES
  5. LUNIVIA [Concomitant]
     Dosage: 0-0-0-1 PIECES
  6. PROMETHAZINE [Concomitant]
     Active Substance: PROMETHAZINE HYDROCHLORIDE
     Dosage: NEURAXPHARMA; 15-25 DROPS
  7. FLUOXETINE HYDROCHLORIDE [Concomitant]
     Active Substance: FLUOXETINE HYDROCHLORIDE
     Dosage: 10 1 A PHARMA; 4-0-0-0 PIECES
  8. DOXAZOSIN MESYLATE [Concomitant]
     Active Substance: DOXAZOSIN MESYLATE
     Dosage: 0-0-0-1 PIECES
  9. ARIPIPRAZOLE [Concomitant]
     Active Substance: ARIPIPRAZOLE
     Dosage: 0-0-1-0 PIECES
  10. PREGABALIN [Concomitant]
     Active Substance: PREGABALIN
     Dosage: PREGABALIN ABZ; 0-0-0-1 PIECES

REACTIONS (1)
  - Hallucination, visual [Recovered/Resolved]
